FAERS Safety Report 10149982 (Version 1)
Quarter: 2014Q2

REPORT INFORMATION
  Report Type: Spontaneous
  Country: CY (occurrence: CY)
  Receive Date: 20140502
  Receipt Date: 20140502
  Transmission Date: 20141212
  Serious: Yes (Death, Life-Threatening, Hospitalization, Other)
  Sender: FDA-Public Use
  Company Number: CY-MERCK-1404CYP015349

PATIENT
  Age: 83 Year
  Sex: Female

DRUGS (7)
  1. JANUMET [Suspect]
     Indication: DIABETES MELLITUS MANAGEMENT
     Dosage: DAILY DOSE: 2 TABLET, TWICE DAILY
     Route: 048
     Dates: start: 201103, end: 201312
  2. JANUVIA [Suspect]
     Indication: DIABETES MELLITUS MANAGEMENT
     Dosage: TOTAL DAILY DOSE: 1 TABLET, ONCE DAILY
     Route: 048
     Dates: start: 201008, end: 201103
  3. SIMVASTATIN [Concomitant]
     Dosage: UNK
     Route: 048
     Dates: start: 2012
  4. MICARDIS [Concomitant]
     Dosage: UNK
     Dates: start: 2010, end: 2012
  5. LOSARTAN POTASSIUM [Concomitant]
     Dosage: UNK
     Route: 048
     Dates: start: 2012
  6. ATENOLOL [Concomitant]
  7. ASPIRIN [Concomitant]

REACTIONS (1)
  - Pancreatic carcinoma [Fatal]
